FAERS Safety Report 12925231 (Version 1)
Quarter: 2016Q4

REPORT INFORMATION
  Report Type: Spontaneous
  Country: US (occurrence: US)
  Receive Date: 20161108
  Receipt Date: 20161108
  Transmission Date: 20170207
  Serious: No
  Sender: FDA-Public Use
  Company Number: US-SA-2016SA145356

PATIENT
  Sex: Female

DRUGS (2)
  1. PRALUENT [Suspect]
     Active Substance: ALIROCUMAB
     Route: 065
  2. ALIROCUMAB PREFILLED PEN [Concomitant]
     Active Substance: ALIROCUMAB

REACTIONS (9)
  - Pollakiuria [Unknown]
  - Bladder irritation [Unknown]
  - Bladder spasm [Unknown]
  - Muscle spasms [Unknown]
  - Renal disorder [Recovering/Resolving]
  - Feeling abnormal [Unknown]
  - Unevaluable event [Unknown]
  - Myalgia [Unknown]
  - Intentional product misuse [Unknown]
